FAERS Safety Report 9495069 (Version 3)
Quarter: 2014Q2

REPORT INFORMATION
  Report Type: Other
  Country: ES (occurrence: ES)
  Receive Date: 20130903
  Receipt Date: 20140403
  Transmission Date: 20141212
  Serious: Yes (Death, Life-Threatening, Hospitalization, Other)
  Sender: FDA-Public Use
  Company Number: ES-CELGENEUS-144-50794-10070183

PATIENT
  Sex: 0

DRUGS (2)
  1. VIDAZA [Suspect]
     Indication: MYELODYSPLASTIC SYNDROME
     Dosage: MOST FREQUENT DOSE
     Route: 058
  2. VIDAZA [Suspect]
     Indication: ACUTE MYELOID LEUKAEMIA

REACTIONS (20)
  - Death [Fatal]
  - Septic shock [Unknown]
  - Neutropenia [Unknown]
  - Thrombocytopenia [Unknown]
  - Anaemia [Unknown]
  - Febrile neutropenia [Unknown]
  - Hypotension [Unknown]
  - Vomiting [Unknown]
  - Infection [Unknown]
  - Acute myeloid leukaemia [Unknown]
  - Myelodysplastic syndrome [Unknown]
  - Toxicity to various agents [Unknown]
  - Asthenia [Unknown]
  - Rash [Unknown]
  - Injection site reaction [Unknown]
  - General physical health deterioration [Unknown]
  - Nausea [Unknown]
  - Back pain [Unknown]
  - Injection site reaction [Unknown]
  - No therapeutic response [Unknown]
